FAERS Safety Report 6006840-X (Version None)
Quarter: 2008Q4

REPORT INFORMATION
  Report Type: 
  Country: None (occurrence: None)
  Receive Date: 20081217
  Receipt Date: 20071029
  Transmission Date: 20090506
  Serious: No
  Sender: FDA-Public Use
  Company Number: US-ASTRAZENECA-2007UW25015

PATIENT
  Age: 83 Year
  Sex: Female
  Weight: 61.2 kg

DRUGS (11)
  1. CRESTOR [Suspect]
     Route: 048
  2. FLU SHOT [Suspect]
  3. NEXIUM [Concomitant]
  4. ATENOLOL [Concomitant]
  5. CARDIZEM LA [Concomitant]
  6. COUMADIN [Concomitant]
  7. LOVAZA [Concomitant]
  8. CALCIUM PLUS [Concomitant]
  9. GLUCOSAMIN-CHONDROITIN [Concomitant]
  10. TYLENOL (CAPLET) [Concomitant]
  11. VITAMIN B COMPLEX CAP [Concomitant]

REACTIONS (4)
  - COUGH [None]
  - LARYNGITIS [None]
  - MEDICATION ERROR [None]
  - OROPHARYNGEAL PAIN [None]
